FAERS Safety Report 9114121 (Version 1)
Quarter: 2013Q1

REPORT INFORMATION
  Report Type: Spontaneous
  Country: US (occurrence: US)
  Receive Date: 20130208
  Receipt Date: 20130208
  Transmission Date: 20140127
  Serious: Yes (Death, Hospitalization)
  Sender: FDA-Public Use
  Company Number: CHPA2013US002405

PATIENT
  Age: 48 Year
  Sex: Female

DRUGS (1)
  1. ACETAMINOPHEN (PARACETAMOL) [Suspect]
     Dosage: UNK, UNK
     Route: 048

REACTIONS (14)
  - Completed suicide [Fatal]
  - Overdose [Fatal]
  - Hyporesponsive to stimuli [Fatal]
  - Atrial fibrillation [Fatal]
  - Depressed level of consciousness [Fatal]
  - Transaminases decreased [Fatal]
  - Blood bilirubin increased [Fatal]
  - Haemodynamic instability [Fatal]
  - Hepatic necrosis [Fatal]
  - Renal tubular necrosis [Fatal]
  - Ascites [Fatal]
  - Pleural effusion [Fatal]
  - Pulmonary oedema [Fatal]
  - Brain oedema [Fatal]
